FAERS Safety Report 9821085 (Version 2)
Quarter: 2014Q1

REPORT INFORMATION
  Report Type: Report from Study
  Country: US (occurrence: US)
  Receive Date: 20140116
  Receipt Date: 20140312
  Transmission Date: 20141002
  Serious: Yes (Other)
  Sender: FDA-Public Use
  Company Number: US-ABBVIE-14P-163-1186971-00

PATIENT
  Age: 33 Year
  Sex: Female
  Weight: 83.99 kg

DRUGS (16)
  1. HUMIRA [Suspect]
     Indication: PSORIASIS
     Dates: start: 201310, end: 20131126
  2. MAXAIR [Concomitant]
     Indication: ASTHMA
  3. CABERGOLINE [Concomitant]
     Indication: PITUITARY TUMOUR BENIGN
  4. CELEXA [Concomitant]
     Indication: ANXIETY
  5. CELEXA [Concomitant]
     Indication: DEPRESSION
  6. SERAQUEL [Concomitant]
     Indication: ANXIETY
  7. SERAQUEL [Concomitant]
     Indication: DEPRESSION
  8. SERAQUEL [Concomitant]
     Indication: INSOMNIA
  9. ZANAFLEX [Concomitant]
     Indication: MUSCLE SPASMS
  10. CLONAZEPAM [Concomitant]
     Indication: POST-TRAUMATIC STRESS DISORDER
  11. OPANA [Concomitant]
     Indication: PAIN
  12. ERRIN [Concomitant]
     Indication: MENSTRUATION IRREGULAR
  13. METHOTREXATE [Concomitant]
     Indication: PSORIASIS
  14. METHOTREXATE [Concomitant]
     Indication: PSORIASIS
  15. FOLIC ACID [Concomitant]
     Indication: VITAMIN SUPPLEMENTATION
  16. DEPAKOTE [Concomitant]
     Indication: AFFECTIVE DISORDER

REACTIONS (12)
  - Swelling face [Recovered/Resolved]
  - Swelling face [Recovering/Resolving]
  - Pharyngeal oedema [Recovered/Resolved]
  - Lymphadenopathy [Recovered/Resolved]
  - Throat tightness [Recovered/Resolved]
  - Local swelling [Recovering/Resolving]
  - Local swelling [Recovering/Resolving]
  - Paraesthesia [Recovering/Resolving]
  - Hypoaesthesia [Recovering/Resolving]
  - Laryngitis [Recovered/Resolved]
  - Psoriasis [Recovered/Resolved]
  - Psoriasis [Not Recovered/Not Resolved]
